FAERS Safety Report 7048329-5 (Version None)
Quarter: 2010Q4

REPORT INFORMATION
  Report Type: 
  Country: None (occurrence: None)
  Receive Date: 20101015
  Receipt Date: 20101006
  Transmission Date: 20110411
  Serious: Yes (Disabling, Other)
  Sender: FDA-Public Use
  Company Number: US-US-EMD SERONO, INC.-7018012

PATIENT
  Sex: Female

DRUGS (5)
  1. REBIF [Suspect]
     Indication: MULTIPLE SCLEROSIS
     Route: 058
     Dates: start: 20020812, end: 20090901
  2. REBIF [Suspect]
     Route: 058
     Dates: start: 20091101, end: 20100701
  3. REBIF [Suspect]
     Route: 058
     Dates: start: 20101001
  4. MULTI-VITAMIN [Concomitant]
  5. PAMPRIN TAB [Concomitant]
     Indication: DYSMENORRHOEA

REACTIONS (6)
  - BLINDNESS TRANSIENT [None]
  - COGNITIVE DISORDER [None]
  - CONVULSION [None]
  - HYPOAESTHESIA [None]
  - MULTIPLE SCLEROSIS RELAPSE [None]
  - PARAESTHESIA [None]
